FAERS Safety Report 5749026-6 (Version None)
Quarter: 2008Q2

REPORT INFORMATION
  Report Type: 
  Country: None (occurrence: None)
  Receive Date: 20080522
  Receipt Date: 20080506
  Transmission Date: 20081010
  Serious: Yes (Other)
  Sender: FDA-Public Use
  Company Number: 8031655

PATIENT
  Age: 60 Year
  Sex: Male
  Weight: 78 kg

DRUGS (2)
  1. KEPPRA [Suspect]
     Indication: EPILEPSY
     Dosage: 1000 MG 2/D PO
     Route: 048
     Dates: start: 20070901, end: 20080101
  2. KEPPRA [Suspect]
     Indication: EPILEPSY

REACTIONS (4)
  - APATHY [None]
  - FATIGUE [None]
  - SOMNOLENCE [None]
  - VISUAL DISTURBANCE [None]
